FAERS Safety Report 12307877 (Version 1)
Quarter: 2016Q2

REPORT INFORMATION
  Report Type: Spontaneous
  Country: CA (occurrence: CA)
  Receive Date: 20160426
  Receipt Date: 20160426
  Transmission Date: 20160815
  Serious: Yes (Hospitalization)
  Sender: FDA-Public Use
  Company Number: CA-VERTEX PHARMACEUTICALS-2016-001632

PATIENT
  Age: 38 Year
  Sex: Female
  Weight: 54 kg

DRUGS (21)
  1. VITAMIN E [Concomitant]
     Active Substance: .ALPHA.-TOCOPHEROL
     Dosage: UNK, QD
  2. SYNTHROID [Concomitant]
     Active Substance: LEVOTHYROXINE SODIUM
     Dosage: 112 ?G, QD
  3. CITALOPRAM [Concomitant]
     Active Substance: CITALOPRAM HYDROBROMIDE
     Dosage: UNK, QD
  4. CAYSTON [Concomitant]
     Active Substance: AZTREONAM
  5. LORAZEPAM. [Concomitant]
     Active Substance: LORAZEPAM
  6. AZITHROMYCIN ANHYDROUS. [Concomitant]
     Active Substance: AZITHROMYCIN ANHYDROUS
  7. TOBRAMYCIN. [Concomitant]
     Active Substance: TOBRAMYCIN
  8. VITAMIN D [Concomitant]
     Active Substance: CHOLECALCIFEROL
     Indication: VITAMIN SUPPLEMENTATION
     Dosage: UNK
     Route: 048
  9. CREON [Concomitant]
     Active Substance: PANCRELIPASE AMYLASE\PANCRELIPASE LIPASE\PANCRELIPASE PROTEASE
  10. TECTA [Concomitant]
     Active Substance: PANTOPRAZOLE MAGNESIUM
     Dosage: 41 MG, QD
  11. ORKAMBI [Suspect]
     Active Substance: IVACAFTOR\LUMACAFTOR
     Indication: CYSTIC FIBROSIS
     Dosage: 400/250 MG, BID
     Route: 048
     Dates: start: 201602
  12. PAROXETINE. [Concomitant]
     Active Substance: PAROXETINE
  13. ORKAMBI [Suspect]
     Active Substance: IVACAFTOR\LUMACAFTOR
     Dosage: 2 DF400/250 MG, BID
     Route: 048
     Dates: start: 20160309
  14. IRON [Concomitant]
     Active Substance: IRON
     Dosage: UNK, QD
  15. NAPROSYN [Concomitant]
     Active Substance: NAPROXEN
  16. ZOPICLONE [Concomitant]
     Active Substance: ZOPICLONE
  17. MVI [Concomitant]
     Active Substance: VITAMINS
     Dosage: UNK, BID
  18. SEASONALE [Concomitant]
     Active Substance: ETHINYL ESTRADIOL\LEVONORGESTREL
     Dosage: 1 DF FOR 91 DAYS
  19. VENTOLIN [Concomitant]
     Active Substance: ALBUTEROL SULFATE
     Route: 055
  20. RANITIDINE. [Concomitant]
     Active Substance: RANITIDINE
  21. VITAMIN K [Concomitant]
     Active Substance: PHYTONADIONE
     Indication: VITAMIN SUPPLEMENTATION
     Dosage: 1 DF, QD
     Route: 048

REACTIONS (4)
  - Nasopharyngitis [Recovering/Resolving]
  - Bronchial injury [Recovered/Resolved]
  - Haemoptysis [Recovered/Resolved]
  - Infective pulmonary exacerbation of cystic fibrosis [Not Recovered/Not Resolved]

NARRATIVE: CASE EVENT DATE: 201603
